FAERS Safety Report 11463498 (Version 1)
Quarter: 2015Q3

REPORT INFORMATION
  Report Type: Spontaneous
  Country: US (occurrence: US)
  Receive Date: 20150831
  Receipt Date: 20150831
  Transmission Date: 20151125
  Serious: Yes (Other)
  Sender: FDA-Public Use
  Company Number: US-ELI_LILLY_AND_COMPANY-US201103006617

PATIENT
  Age: 44 Year
  Sex: Male

DRUGS (2)
  1. CYMBALTA [Suspect]
     Active Substance: DULOXETINE HYDROCHLORIDE
     Indication: MAJOR DEPRESSION
     Dosage: 60 MG, UNK
  2. FENTANYL. [Interacting]
     Active Substance: FENTANYL
     Dosage: UNK
     Dates: start: 201103

REACTIONS (3)
  - Oxygen saturation decreased [Recovering/Resolving]
  - Drug interaction [Unknown]
  - Serotonin syndrome [Recovering/Resolving]

NARRATIVE: CASE EVENT DATE: 20110317
